FAERS Safety Report 7908565-X (Version None)
Quarter: 2011Q4

REPORT INFORMATION
  Report Type: 
  Country: None (occurrence: None)
  Receive Date: 20111111
  Receipt Date: 20111102
  Transmission Date: 20120403
  Serious: Yes (Other)
  Sender: FDA-Public Use
  Company Number: US-PFIZER INC-2010127736

PATIENT
  Sex: Female
  Weight: 44.444 kg

DRUGS (10)
  1. CHANTIX [Suspect]
     Dosage: 0.5 MG, 1X/DAY
     Route: 048
     Dates: start: 20110701, end: 20110101
  2. CHANTIX [Suspect]
     Indication: SMOKING CESSATION THERAPY
     Dosage: 0.5 MG, 1X/DAY
     Route: 048
     Dates: start: 20100901, end: 20100101
  3. CHANTIX [Suspect]
     Dosage: UNK
     Route: 048
     Dates: start: 20100101, end: 20101201
  4. ADVAIR DISKUS 100/50 [Concomitant]
     Indication: CHRONIC OBSTRUCTIVE PULMONARY DISEASE
     Dosage: [FLUTICASONE PROPIONATE 500MCG]/[SALMETEROL XINAFOATE 50MCG], UNK
  5. CHANTIX [Suspect]
     Dosage: UNK
     Dates: start: 20110618, end: 20110101
  6. CHANTIX [Suspect]
     Dosage: 1 MG, 2X/DAY
     Dates: start: 20110101, end: 20110822
  7. LIPITOR [Suspect]
     Indication: BLOOD CHOLESTEROL INCREASED
     Dosage: 20 MG, 1X/DAY
     Route: 048
     Dates: start: 20110514, end: 20110530
  8. IBUPROFEN (ADVIL) [Concomitant]
     Dosage: 500/50 MG, UNK
  9. LIPITOR [Suspect]
     Dosage: 40 MG, DAILY
     Dates: start: 20110531
  10. PROAIR HFA [Concomitant]
     Indication: CHRONIC OBSTRUCTIVE PULMONARY DISEASE
     Dosage: UNK

REACTIONS (19)
  - ENERGY INCREASED [None]
  - DEPRESSED MOOD [None]
  - HYPERSENSITIVITY [None]
  - INSOMNIA [None]
  - HALLUCINATION [None]
  - CONFUSIONAL STATE [None]
  - ASTHENIA [None]
  - PARANOIA [None]
  - FEAR [None]
  - ABNORMAL DREAMS [None]
  - BLOOD CHOLESTEROL INCREASED [None]
  - WEIGHT DECREASED [None]
  - STRESS [None]
  - DECREASED APPETITE [None]
  - NAUSEA [None]
  - NERVOUSNESS [None]
  - FEELING ABNORMAL [None]
  - RESTLESSNESS [None]
  - ANXIETY [None]
